FAERS Safety Report 4505032-0 (Version None)
Quarter: 2004Q4

REPORT INFORMATION
  Report Type: 
  Country: None (occurrence: None)
  Receive Date: 20041015
  Receipt Date: 20031020
  Transmission Date: 20050328
  Serious: Yes (Other)
  Sender: FDA-Public Use
  Company Number: 2003039268

PATIENT
  Age: 51 Year
  Sex: Female
  Weight: 54.4316 kg

DRUGS (3)
  1. NEURONTIN [Suspect]
     Indication: NEUROPATHIC PAIN
     Dosage: 300MG (TWICE DAILY) ORAL
     Route: 048
     Dates: end: 20030801
  2. NORTRIPTYLINE HCL [Concomitant]
  3. VICODIN [Concomitant]

REACTIONS (16)
  - ABDOMINAL PAIN [None]
  - AMNESIA [None]
  - ATAXIA [None]
  - DIARRHOEA [None]
  - DIZZINESS [None]
  - DYSARTHRIA [None]
  - DYSPHAGIA [None]
  - ERUCTATION [None]
  - FLATULENCE [None]
  - GASTRITIS [None]
  - HAEMATOCHEZIA [None]
  - NAUSEA [None]
  - NEUROPATHIC PAIN [None]
  - RECTAL HAEMORRHAGE [None]
  - SOMNOLENCE [None]
  - VERTIGO [None]
